FAERS Safety Report 20991222 (Version 1)
Quarter: 2022Q2

REPORT INFORMATION
  Report Type: Report from Study
  Country: BR (occurrence: BR)
  Receive Date: 20220622
  Receipt Date: 20220622
  Transmission Date: 20220721
  Serious: Yes (Other)
  Sender: FDA-Public Use
  Company Number: BR-NOVARTISPH-NVSC2022BR139304

PATIENT
  Sex: Female

DRUGS (1)
  1. PIQRAY [Suspect]
     Active Substance: ALPELISIB
     Indication: Product used for unknown indication
     Dosage: UNK
     Route: 065
     Dates: start: 20220406

REACTIONS (4)
  - Diabetes mellitus [Recovering/Resolving]
  - Memory impairment [Not Recovered/Not Resolved]
  - Pain [Recovering/Resolving]
  - Neoplasm [Unknown]
